FAERS Safety Report 15917522 (Version 5)
Quarter: 2022Q1

REPORT INFORMATION
  Report Type: Spontaneous
  Country: NL (occurrence: NL)
  Receive Date: 20190205
  Receipt Date: 20220105
  Transmission Date: 20220423
  Serious: Yes (Life-Threatening, Hospitalization, Other)
  Sender: FDA-Public Use
  Company Number: NL-AUROBINDO-AUR-APL-2019-004881

PATIENT
  Age: 51 Year
  Sex: Female

DRUGS (3)
  1. AMLODIPINE [Suspect]
     Active Substance: AMLODIPINE BESYLATE
     Indication: Suicide attempt
     Dosage: 30 DOSAGE FORM
     Route: 065
  2. AMLODIPINE [Suspect]
     Active Substance: AMLODIPINE BESYLATE
     Dosage: 5 MILLIGRAM
     Route: 048
  3. INDAPAMIDE\PERINDOPRIL [Suspect]
     Active Substance: INDAPAMIDE\PERINDOPRIL
     Indication: Suicide attempt
     Dosage: 80 DOSAGE FORM
     Route: 048

REACTIONS (10)
  - Suicide attempt [Recovering/Resolving]
  - Cardiogenic shock [Recovered/Resolved]
  - Bradycardia [Recovering/Resolving]
  - Anuria [Recovered/Resolved]
  - Metabolic acidosis [Recovered/Resolved]
  - Intentional overdose [Recovered/Resolved]
  - Toxicity to various agents [Recovering/Resolving]
  - Distributive shock [Recovering/Resolving]
  - Shock [Recovered/Resolved]
  - Overdose [Recovered/Resolved]
